FAERS Safety Report 8165538-2 (Version None)
Quarter: 2012Q1

REPORT INFORMATION
  Report Type: 
  Country: None (occurrence: None)
  Receive Date: 20120223
  Receipt Date: 20120223
  Transmission Date: 20120608
  Serious: Yes (Life-Threatening, Hospitalization, Other)
  Sender: FDA-Public Use
  Company Number: None

PATIENT
  Age: 68 Year
  Sex: Male
  Weight: 81.6475 kg

DRUGS (1)
  1. BACLOFEN [Suspect]
     Dosage: 10 MG 1 TABLET P.M.
     Dates: start: 20110823, end: 20120101

REACTIONS (12)
  - MUSCULAR WEAKNESS [None]
  - TREMOR [None]
  - DEPRESSION [None]
  - HALLUCINATION [None]
  - CHEST PAIN [None]
  - MOOD ALTERED [None]
  - CONVULSION [None]
  - LACRIMATION INCREASED [None]
  - MENTAL STATUS CHANGES [None]
  - DRUG INTERACTION [None]
  - VISION BLURRED [None]
  - BALANCE DISORDER [None]
